FAERS Safety Report 19513100 (Version 8)
Quarter: 2024Q3

REPORT INFORMATION
  Report Type: Spontaneous
  Country: US (occurrence: US)
  Receive Date: 20210709
  Receipt Date: 20240812
  Transmission Date: 20241017
  Serious: Yes (Hospitalization)
  Sender: PFIZER
  Company Number: US-PFIZER INC-2021785807

PATIENT
  Age: 71 Year
  Sex: Female

DRUGS (5)
  1. IBRANCE [Suspect]
     Active Substance: PALBOCICLIB
     Dosage: 125 MG
     Dates: start: 20210328
  2. IBRANCE [Suspect]
     Active Substance: PALBOCICLIB
     Dosage: 125 MG
     Dates: start: 20210401
  3. IBRANCE [Suspect]
     Active Substance: PALBOCICLIB
     Dosage: 125 MG
     Dates: start: 20210423
  4. IBRANCE [Suspect]
     Active Substance: PALBOCICLIB
     Dosage: 125 MG
     Dates: start: 20210519
  5. IBRANCE [Suspect]
     Active Substance: PALBOCICLIB
     Dosage: 125 MG
     Dates: start: 20210930

REACTIONS (10)
  - COVID-19 [Recovered/Resolved]
  - Alopecia [Unknown]
  - Stomatitis [Unknown]
  - Hypoaesthesia [Unknown]
  - Fatigue [Unknown]
  - Pruritus [Recovering/Resolving]
  - Memory impairment [Unknown]
  - Wound complication [Recovering/Resolving]
  - Scratch [Not Recovered/Not Resolved]
  - Constipation [Unknown]
